FAERS Safety Report 7439626-X (Version None)
Quarter: 2011Q2

REPORT INFORMATION
  Report Type: 
  Country: None (occurrence: None)
  Receive Date: 20110427
  Receipt Date: 20110418
  Transmission Date: 20111010
  Serious: Yes (Other)
  Sender: FDA-Public Use
  Company Number: US-PFIZER INC-2011083508

PATIENT
  Sex: Female
  Weight: 68.027 kg

DRUGS (5)
  1. CORTEF [Suspect]
     Dosage: UNKNOWN DOSE, 2.5 A DAY
  2. CORTEF [Suspect]
     Indication: ADRENAL INSUFFICIENCY
     Dosage: 5 MG A DAY
     Dates: start: 20090101
  3. CORTEF [Suspect]
     Dosage: UNKNOWN DOSE, 3.5 TO 4 A DAY
  4. THYROID [Concomitant]
     Indication: THYROID FUNCTION TEST ABNORMAL
     Dosage: 32.5 MG, 1X/DAY
     Dates: start: 20090101
  5. PROGESTERONE [Concomitant]
     Indication: PROGESTERONE DECREASED
     Dosage: UNK

REACTIONS (7)
  - PRODUCT TASTE ABNORMAL [None]
  - PRODUCT SOLUBILITY ABNORMAL [None]
  - PALPITATIONS [None]
  - SWELLING FACE [None]
  - FATIGUE [None]
  - HYPERSENSITIVITY [None]
  - MALAISE [None]
